FAERS Safety Report 8471016-3 (Version None)
Quarter: 2012Q2

REPORT INFORMATION
  Report Type: 
  Country: None (occurrence: None)
  Receive Date: 20120627
  Receipt Date: 20120618
  Transmission Date: 20120825
  Serious: Yes (Hospitalization)
  Sender: FDA-Public Use
  Company Number: US-BAYER-2012-061905

PATIENT
  Age: 29 Year
  Sex: Female
  Weight: 59 kg

DRUGS (13)
  1. YAZ [Suspect]
     Indication: CONTRACEPTION
  2. TRAZODONE HCL [Concomitant]
  3. EFFEXOR [Concomitant]
  4. BEYAZ [Suspect]
  5. YAZ [Suspect]
     Indication: MENSTRUAL CYCLE MANAGEMENT
  6. YAZ [Suspect]
     Indication: PREMENSTRUAL SYNDROME
  7. HYDROCORTISONE ACETATE [Concomitant]
  8. YAZ [Suspect]
     Indication: ENDOMETRIAL DISORDER
  9. VENLAFAXINE [Concomitant]
     Dosage: 37.5 MG, UNK
  10. NATUROPATHIC +#8220;PREMEN+#8221; [Concomitant]
  11. ELAVIL [Concomitant]
     Dosage: 25 MG, UNK
  12. ZOLOFT [Concomitant]
     Dosage: 50 MG, UNK
     Dates: start: 20090701
  13. AMITRIPTYLINE HCL [Concomitant]
     Dosage: 25 MG, UNK

REACTIONS (1)
  - COLITIS ISCHAEMIC [None]
